FAERS Safety Report 20715560 (Version 3)
Quarter: 2022Q2

REPORT INFORMATION
  Report Type: Spontaneous
  Country: US (occurrence: US)
  Receive Date: 20220415
  Receipt Date: 20220524
  Transmission Date: 20220721
  Serious: No
  Sender: FDA-Public Use
  Company Number: US-PFIZER INC-202200454290

PATIENT
  Age: 56 Year
  Sex: Female

DRUGS (1)
  1. IBRANCE [Suspect]
     Active Substance: PALBOCICLIB
     Dosage: 125 MG, CYCLIC (DAILY FOR 21 DAYS OF A 28 DAY CYCLE)
     Dates: start: 20220311

REACTIONS (7)
  - Fatigue [Unknown]
  - Epistaxis [Unknown]
  - Dyspnoea [Unknown]
  - Contusion [Unknown]
  - Stomatitis [Unknown]
  - Increased tendency to bruise [Unknown]
  - Nausea [Unknown]

NARRATIVE: CASE EVENT DATE: 20220101
